FAERS Safety Report 21926884 (Version 2)
Quarter: 2023Q2

REPORT INFORMATION
  Report Type: Spontaneous
  Country: US (occurrence: US)
  Receive Date: 20230130
  Receipt Date: 20230629
  Transmission Date: 20230722
  Serious: No
  Sender: FDA-Public Use
  Company Number: US-PFIZER INC-PV202300015524

PATIENT
  Age: 57 Year
  Sex: Female

DRUGS (1)
  1. IBRANCE [Suspect]
     Active Substance: PALBOCICLIB
     Dosage: 125 MG

REACTIONS (11)
  - Skin discolouration [Unknown]
  - Dark circles under eyes [Unknown]
  - White blood cell count decreased [Unknown]
  - Nausea [Unknown]
  - Weight decreased [Unknown]
  - Fatigue [Unknown]
  - Alopecia [Unknown]
  - Depression [Not Recovered/Not Resolved]
  - Loss of personal independence in daily activities [Unknown]
  - Cough [Unknown]
  - Chest pain [Unknown]
